FAERS Safety Report 18789613 (Version 1)
Quarter: 2021Q1

REPORT INFORMATION
  Report Type: Spontaneous
  Country: CN (occurrence: CN)
  Receive Date: 20210126
  Receipt Date: 20210126
  Transmission Date: 20210419
  Serious: Yes (Hospitalization, Other)
  Sender: FDA-Public Use
  Company Number: CN-ASTRAZENECA-2021A010034

PATIENT
  Age: 10962 Day
  Sex: Female
  Weight: 51 kg

DRUGS (11)
  1. GLYCYRRHIZIN [Concomitant]
     Active Substance: GLYCYRRHIZIN
     Route: 048
  2. BISMUTH POTASSIUM CITRATE [Suspect]
     Active Substance: BISMUTH SUBCITRATE
     Indication: HELICOBACTER INFECTION
     Route: 048
     Dates: start: 20210101, end: 20210108
  3. PHELLODENDRON AMURENSE [Concomitant]
  4. AMOXICILLIN. [Suspect]
     Active Substance: AMOXICILLIN
     Indication: HELICOBACTER INFECTION
     Route: 048
     Dates: start: 20210101, end: 20210108
  5. KETOTIFEN FUMARATE. [Concomitant]
     Active Substance: KETOTIFEN FUMARATE
     Dosage: 1MG QN
     Route: 048
  6. DESONIDE. [Concomitant]
     Active Substance: DESONIDE
  7. DEXAMETHASONE SODIUM PHOSPHATE. [Concomitant]
     Active Substance: DEXAMETHASONE SODIUM PHOSPHATE
     Dosage: 10MG QD
     Route: 030
  8. CLEMASTINE FUMARATE. [Concomitant]
     Active Substance: CLEMASTINE FUMARATE
     Route: 048
  9. NEXIUM [Suspect]
     Active Substance: ESOMEPRAZOLE MAGNESIUM
     Indication: HELICOBACTER INFECTION
     Route: 048
     Dates: start: 20210101, end: 20210108
  10. CLARITHROMYCIN. [Suspect]
     Active Substance: CLARITHROMYCIN
     Indication: HELICOBACTER INFECTION
     Route: 048
     Dates: start: 20210101, end: 20210108
  11. PREDNISOLONE ACETATE. [Concomitant]
     Active Substance: PREDNISOLONE ACETATE
     Dosage: 20MG QM
     Route: 048

REACTIONS (8)
  - Rash pustular [Recovering/Resolving]
  - Oropharyngeal pain [Recovering/Resolving]
  - Insomnia [Unknown]
  - Flushing [Recovering/Resolving]
  - Papule [Unknown]
  - Pruritus [Recovering/Resolving]
  - Erythema [Unknown]
  - Drug hypersensitivity [Unknown]

NARRATIVE: CASE EVENT DATE: 20210108
